FAERS Safety Report 5885362-0 (Version None)
Quarter: 2008Q3

REPORT INFORMATION
  Report Type: 
  Country: None (occurrence: None)
  Receive Date: 20080916
  Receipt Date: 20080908
  Transmission Date: 20090109
  Serious: Yes (Hospitalization)
  Sender: FDA-Public Use
  Company Number: FR-ABBOTT-08P-056-0475137-00

PATIENT
  Sex: Female

DRUGS (3)
  1. VALPROATE SODIUM [Suspect]
     Indication: EPILEPSY
     Route: 048
     Dates: start: 20080301
  2. VALPROATE SODIUM [Concomitant]
     Route: 048
     Dates: end: 20080301
  3. CLOBAZAM [Concomitant]
     Indication: EPILEPSY
     Route: 048

REACTIONS (5)
  - DRUG LEVEL BELOW THERAPEUTIC [None]
  - EPILEPSY [None]
  - MALAISE [None]
  - THERAPEUTIC RESPONSE UNEXPECTED WITH DRUG SUBSTITUTION [None]
  - WEIGHT INCREASED [None]
